FAERS Safety Report 15992405 (Version 3)
Quarter: 2019Q1

REPORT INFORMATION
  Report Type: Spontaneous
  Country: US (occurrence: US)
  Receive Date: 20190221
  Receipt Date: 20190315
  Transmission Date: 20190418
  Serious: Yes (Other)
  Sender: FDA-Public Use
  Company Number: US-PFIZER INC-2018445619

PATIENT
  Age: 65 Year

DRUGS (1)
  1. LYRICA [Suspect]
     Active Substance: PREGABALIN
     Dosage: 300 MG, 3X/DAY (150 MG 2 CAPSULE BY MOUTH THREE TIMES DAILY)
     Route: 048

REACTIONS (2)
  - Prescribed overdose [Unknown]
  - Renal cancer [Unknown]
